APPROVED DRUG PRODUCT: ULTRAVATE
Active Ingredient: HALOBETASOL PROPIONATE
Strength: 0.05% **Federal Register determination that product was not discontinued or withdrawn for safety or effectiveness reasons**
Dosage Form/Route: CREAM;TOPICAL
Application: N019967 | Product #001
Applicant: SUN PHARMACEUTICAL INDUSTRIES INC
Approved: Dec 27, 1990 | RLD: Yes | RS: No | Type: DISCN